FAERS Safety Report 13576911 (Version 5)
Quarter: 2018Q2

REPORT INFORMATION
  Report Type: Report from Study
  Country: None (occurrence: US)
  Receive Date: 20170524
  Receipt Date: 20180627
  Transmission Date: 20180711
  Serious: Yes (Hospitalization, Other)
  Sender: FDA-Public Use
  Company Number: US-ABBVIE-17K-163-1930333-00

PATIENT
  Age: 66 Year
  Sex: Female

DRUGS (3)
  1. HUMIRA [Suspect]
     Active Substance: ADALIMUMAB
     Indication: CROHN^S DISEASE
     Route: 058
     Dates: start: 2015, end: 201701
  2. VERAPAMIL [Concomitant]
     Active Substance: VERAPAMIL HYDROCHLORIDE
     Indication: PRODUCT USED FOR UNKNOWN INDICATION
  3. HUMIRA [Suspect]
     Active Substance: ADALIMUMAB
     Indication: COLITIS ULCERATIVE
     Route: 058
     Dates: start: 201802

REACTIONS (25)
  - Injection site pain [Not Recovered/Not Resolved]
  - Pruritus [Unknown]
  - Fall [Unknown]
  - Intestinal obstruction [Recovered/Resolved]
  - Eye disorder [Recovered/Resolved]
  - Faecal vomiting [Unknown]
  - Dumping syndrome [Not Recovered/Not Resolved]
  - Diarrhoea [Not Recovered/Not Resolved]
  - Gastroenteritis viral [Not Recovered/Not Resolved]
  - Rash [Unknown]
  - Back pain [Not Recovered/Not Resolved]
  - Uterine infection [Unknown]
  - Frequent bowel movements [Not Recovered/Not Resolved]
  - Abdominal adhesions [Recovered/Resolved]
  - Vomiting projectile [Recovered/Resolved]
  - Diarrhoea [Recovered/Resolved]
  - Device related infection [Recovered/Resolved]
  - Weight decreased [Recovering/Resolving]
  - Faeces soft [Not Recovered/Not Resolved]
  - Diabetes mellitus [Unknown]
  - Postoperative wound infection [Recovered/Resolved]
  - Papule [Unknown]
  - Postoperative ileus [Recovered/Resolved]
  - Weight increased [Recovered/Resolved]
  - Back disorder [Unknown]

NARRATIVE: CASE EVENT DATE: 2015
